FAERS Safety Report 8135523-5 (Version None)
Quarter: 2012Q1

REPORT INFORMATION
  Report Type: 
  Country: None (occurrence: None)
  Receive Date: 20120214
  Receipt Date: 20120206
  Transmission Date: 20120608
  Serious: Yes (Hospitalization, Other)
  Sender: FDA-Public Use
  Company Number: CA-BAXTER-2012BH003925

PATIENT
  Age: 53 Year
  Sex: Male

DRUGS (3)
  1. GAMMAGARD LIQUID [Suspect]
     Route: 042
     Dates: start: 20120114, end: 20120114
  2. GAMMAGARD LIQUID [Suspect]
     Indication: THROMBOCYTOPENIA
     Route: 042
     Dates: start: 20120202, end: 20120202
  3. GAMMAGARD LIQUID [Suspect]
     Route: 042
     Dates: start: 20120114, end: 20120114

REACTIONS (8)
  - MUSCLE SPASMS [None]
  - ADVERSE DRUG REACTION [None]
  - RESTLESS LEGS SYNDROME [None]
  - HEART RATE INCREASED [None]
  - TACHYPNOEA [None]
  - TACHYCARDIA [None]
  - DYSPNOEA [None]
  - HYPOXIA [None]
